FAERS Safety Report 4882266-7 (Version None)
Quarter: 2006Q1

REPORT INFORMATION
  Report Type: 
  Country: None (occurrence: None)
  Receive Date: 20060113
  Receipt Date: 20060113
  Transmission Date: 20060701
  Serious: Yes (Hospitalization)
  Sender: FDA-Public Use
  Company Number: None

PATIENT
  Age: 74 Year
  Sex: Female
  Weight: 76.6579 kg

DRUGS (12)
  1. OXANDRIN [Suspect]
     Indication: WEIGHT DECREASED
     Dosage: 10 MG BID PO
     Route: 048
     Dates: start: 20051118
  2. COZAAR [Concomitant]
  3. CELEBREX [Concomitant]
  4. ALLOPURINOL [Concomitant]
  5. ASPIRIN [Concomitant]
  6. TYLENOL (CAPLET) [Concomitant]
  7. VICODIN [Concomitant]
  8. CARBOPLATIN [Concomitant]
  9. TAXOTERE [Concomitant]
  10. DECADRON [Concomitant]
  11. TAGAMET [Concomitant]
  12. KYTRIL [Concomitant]

REACTIONS (4)
  - DEHYDRATION [None]
  - HYPOTENSION [None]
  - INFECTION [None]
  - NEUTROPENIA [None]
